FAERS Safety Report 14829599 (Version 3)
Quarter: 2022Q1

REPORT INFORMATION
  Report Type: Spontaneous
  Country: FR (occurrence: FR)
  Receive Date: 20180430
  Receipt Date: 20220304
  Transmission Date: 20220423
  Serious: Yes (Hospitalization)
  Sender: FDA-Public Use
  Company Number: None

PATIENT
  Age: 40 Year
  Sex: Female

DRUGS (5)
  1. PREDNISOLONE [Suspect]
     Active Substance: PREDNISOLONE
     Indication: Dyspnoea
     Dosage: UNK
     Route: 048
     Dates: start: 20170922
  2. VISIPAQUE [Suspect]
     Active Substance: IODIXANOL
     Indication: Computerised tomogram
     Dosage: UNK
     Route: 042
     Dates: start: 20171018, end: 20171018
  3. TIXOCORTOL PIVALATE [Suspect]
     Active Substance: TIXOCORTOL PIVALATE
     Indication: Dyspnoea
     Dosage: UNK
     Route: 045
     Dates: start: 20170922
  4. PRISTINAMYCIN [Suspect]
     Active Substance: PRISTINAMYCIN
     Indication: Dyspnoea
     Dosage: UNK
     Route: 048
     Dates: start: 20170922
  5. ESCARGOT [Suspect]
     Active Substance: ESCARGOT
     Indication: Cough
     Dosage: UNK
     Route: 048
     Dates: start: 20170922

REACTIONS (1)
  - Rash maculo-papular [Recovered/Resolved]

NARRATIVE: CASE EVENT DATE: 20171020
